FAERS Safety Report 10131309 (Version 1)
Quarter: 2014Q2

REPORT INFORMATION
  Report Type: Spontaneous
  Country: US (occurrence: US)
  Receive Date: 20140428
  Receipt Date: 20140428
  Transmission Date: 20141212
  Serious: No
  Sender: FDA-Public Use
  Company Number: US-GLAXOSMITHKLINE-A1056594A

PATIENT
  Age: 46 Year
  Sex: Female

DRUGS (16)
  1. ONDANSETRON [Suspect]
     Indication: PRODUCT USED FOR UNKNOWN INDICATION
     Dosage: 4MG UNKNOWN
     Route: 042
  2. FENTANYL CITRATE [Suspect]
     Indication: PRODUCT USED FOR UNKNOWN INDICATION
     Dosage: 200MCG UNKNOWN
     Route: 065
  3. MIDAZOLAM [Suspect]
     Indication: PRODUCT USED FOR UNKNOWN INDICATION
     Dosage: 5MG UNKNOWN
     Route: 065
  4. SALINE FLUSH [Suspect]
     Indication: PRODUCT USED FOR UNKNOWN INDICATION
     Route: 065
  5. CYANOCOBALAMIN [Concomitant]
  6. GABAPENTIN [Concomitant]
  7. LEVOTHYROXINE [Concomitant]
  8. LIDODERM [Concomitant]
  9. MAGNESIUM GLUCONATE [Concomitant]
  10. PROPRANOLOL [Concomitant]
  11. SERTRALINE [Concomitant]
  12. ONDANSETRON [Concomitant]
     Route: 048
  13. OXYCODONE [Concomitant]
  14. PANTOPRAZOLE [Concomitant]
  15. POTASSIUM [Concomitant]
  16. TEMAZEPAM [Concomitant]

REACTIONS (3)
  - Injection site erythema [Recovered/Resolved]
  - Injection site pruritus [Recovered/Resolved]
  - Urticaria [Recovered/Resolved]
